FAERS Safety Report 19189054 (Version 1)
Quarter: 2021Q2

REPORT INFORMATION
  Report Type: Spontaneous
  Country: US (occurrence: US)
  Receive Date: 20210427
  Receipt Date: 20210427
  Transmission Date: 20210717
  Serious: Yes (Other)
  Sender: FDA-Public Use
  Company Number: None

PATIENT
  Age: 34 Year
  Sex: Female
  Weight: 83.25 kg

DRUGS (1)
  1. NEUTROGENA OIL FREE ACNE WASH CLEANSER [Suspect]
     Active Substance: SALICYLIC ACID
     Indication: SKIN DISORDER
     Dates: start: 20210424, end: 20210424

REACTIONS (3)
  - Dry skin [None]
  - Burning sensation [None]
  - Rash [None]

NARRATIVE: CASE EVENT DATE: 20210424
